FAERS Safety Report 22682841 (Version 4)
Quarter: 2024Q1

REPORT INFORMATION
  Report Type: Report from Study
  Country: BR (occurrence: BR)
  Receive Date: 20230707
  Receipt Date: 20240311
  Transmission Date: 20240410
  Serious: Yes (Life-Threatening, Hospitalization, Other)
  Sender: FDA-Public Use
  Company Number: BR-002147023-NVSC2023BR151759

PATIENT
  Age: 42 Year
  Sex: Female

DRUGS (12)
  1. RIBOCICLIB [Suspect]
     Active Substance: RIBOCICLIB
     Indication: Breast cancer metastatic
     Dosage: 3 DOSAGE FORM
     Route: 065
     Dates: start: 20230616
  2. RIBOCICLIB [Suspect]
     Active Substance: RIBOCICLIB
     Indication: Pulmonary mass
  3. RIBOCICLIB [Suspect]
     Active Substance: RIBOCICLIB
     Indication: Metastases to spine
  4. RIBOCICLIB [Suspect]
     Active Substance: RIBOCICLIB
     Indication: Breast cancer
  5. LETROZOLE [Suspect]
     Active Substance: LETROZOLE
     Indication: Breast cancer metastatic
     Dosage: UNK
     Route: 065
  6. LETROZOLE [Suspect]
     Active Substance: LETROZOLE
     Indication: Metastases to spine
  7. LETROZOLE [Suspect]
     Active Substance: LETROZOLE
     Indication: Pulmonary mass
  8. GABAPENTIN [Suspect]
     Active Substance: GABAPENTIN
     Indication: Intervertebral disc disorder
     Dosage: UNK
     Route: 065
  9. CEPHALEXIN [Suspect]
     Active Substance: CEPHALEXIN
     Indication: Wound
     Dosage: UNK
     Route: 065
  10. DIAZEPAM [Suspect]
     Active Substance: DIAZEPAM
     Indication: Sleep disorder
     Dosage: UNK
     Route: 065
  11. HEPARIN [Suspect]
     Active Substance: HEPARIN SODIUM
     Indication: Thrombosis
     Dosage: UNK
     Route: 065
  12. BUPROPION [Concomitant]
     Active Substance: BUPROPION
     Indication: Product used for unknown indication
     Dosage: UNK
     Route: 065

REACTIONS (39)
  - Diarrhoea [Recovered/Resolved]
  - Arthralgia [Unknown]
  - Neutropenia [Unknown]
  - Metastases to bone [Unknown]
  - Epilepsy [Unknown]
  - Food aversion [Unknown]
  - Breast pain [Unknown]
  - Wound secretion [Unknown]
  - Pain [Unknown]
  - Hypersensitivity [Unknown]
  - Memory impairment [Not Recovered/Not Resolved]
  - Anxiety [Recovering/Resolving]
  - Weight decreased [Unknown]
  - Decreased immune responsiveness [Recovered/Resolved]
  - Influenza [Unknown]
  - Pharyngitis [Recovered/Resolved]
  - Oropharyngeal discomfort [Unknown]
  - Pain in extremity [Recovering/Resolving]
  - Visual impairment [Unknown]
  - Coating in mouth [Unknown]
  - Nasopharyngitis [Unknown]
  - Oropharyngeal pain [Unknown]
  - Dysphonia [Unknown]
  - Back pain [Recovering/Resolving]
  - Pyrexia [Unknown]
  - Cough [Unknown]
  - Headache [Unknown]
  - Nausea [Unknown]
  - Pruritus [Unknown]
  - Abdominal distension [Recovered/Resolved]
  - Swelling face [Recovered/Resolved]
  - Swelling [Unknown]
  - Peripheral swelling [Recovered/Resolved]
  - Alopecia [Not Recovered/Not Resolved]
  - Limb discomfort [Unknown]
  - Spinal pain [Unknown]
  - Paraesthesia [Recovering/Resolving]
  - Depression [Recovering/Resolving]
  - Abdominal discomfort [Unknown]

NARRATIVE: CASE EVENT DATE: 20230420
